FAERS Safety Report 7063692-7 (Version None)
Quarter: 2010Q4

REPORT INFORMATION
  Report Type: 
  Country: None (occurrence: None)
  Receive Date: 20101026
  Receipt Date: 20101014
  Transmission Date: 20110411
  Serious: Yes (Other)
  Sender: FDA-Public Use
  Company Number: BR-US-EMD SERONO, INC.-7013008

PATIENT
  Sex: Female

DRUGS (3)
  1. REBIF [Suspect]
     Indication: RELAPSING-REMITTING MULTIPLE SCLEROSIS
     Route: 058
     Dates: start: 20070201, end: 20100501
  2. REBIF [Suspect]
     Route: 058
     Dates: start: 20100601
  3. ACETAMINOPHEN [Concomitant]

REACTIONS (11)
  - ABDOMINAL PAIN [None]
  - CENTRAL NERVOUS SYSTEM LESION [None]
  - CHILLS [None]
  - DRUG DOSE OMISSION [None]
  - HYPERHIDROSIS [None]
  - HYPOAESTHESIA [None]
  - INFLUENZA LIKE ILLNESS [None]
  - MENORRHAGIA [None]
  - POLYMENORRHOEA [None]
  - UTERINE INJURY [None]
  - UTERINE LEIOMYOMA [None]
